FAERS Safety Report 12689974 (Version 1)
Quarter: 2016Q3

REPORT INFORMATION
  Report Type: Report from Study
  Country: US (occurrence: US)
  Receive Date: 20160826
  Receipt Date: 20160826
  Transmission Date: 20161109
  Serious: Yes (Other)
  Sender: FDA-Public Use
  Company Number: US-009507513-1608USA009463

PATIENT

DRUGS (2)
  1. ARHALOFENATE [Concomitant]
     Indication: GOUT
     Dosage: 600 MG, QD
  2. PRINIVIL [Suspect]
     Active Substance: LISINOPRIL
     Route: 048

REACTIONS (1)
  - Angioedema [Recovered/Resolved]
